FAERS Safety Report 12696807 (Version 1)
Quarter: 2016Q3

REPORT INFORMATION
  Report Type: Report from Study
  Country: TR (occurrence: TR)
  Receive Date: 20160830
  Receipt Date: 20160830
  Transmission Date: 20161109
  Serious: Yes (Hospitalization, Other)
  Sender: FDA-Public Use
  Company Number: TR-ACCORD-043464

PATIENT
  Age: 66 Year
  Sex: Male

DRUGS (4)
  1. ETOPOSIDE. [Suspect]
     Active Substance: ETOPOSIDE
     Indication: IMMUNOSUPPRESSION
  2. CISPLATIN. [Suspect]
     Active Substance: CISPLATIN
     Indication: IMMUNOSUPPRESSION
  3. TAXOTERE [Suspect]
     Active Substance: DOCETAXEL
     Indication: IMMUNOSUPPRESSION
  4. NAVELBINE [Suspect]
     Active Substance: VINORELBINE TARTRATE
     Indication: IMMUNOSUPPRESSION

REACTIONS (2)
  - Microsporidia infection [Unknown]
  - Pneumocystis jirovecii infection [Unknown]
